FAERS Safety Report 9150072 (Version 1)
Quarter: 2013Q1

REPORT INFORMATION
  Report Type: Spontaneous
  Country: US (occurrence: None)
  Receive Date: 20130228
  Receipt Date: 20130228
  Transmission Date: 20140127
  Serious: Yes (Hospitalization)
  Sender: FDA-Public Use
  Company Number: None

PATIENT
  Age: 70 Year
  Sex: Male
  Weight: 105 kg

DRUGS (2)
  1. WARFARIN [Suspect]
     Indication: CARDIOVASCULAR DISORDER
     Dosage: MG
     Route: 048
     Dates: start: 20040407
  2. WARFARIN [Suspect]
     Indication: SURGERY
     Dosage: MG
     Route: 048
     Dates: start: 20040407

REACTIONS (2)
  - Scrotal haematocoele [None]
  - Anaemia [None]
